FAERS Safety Report 4945371-2 (Version None)
Quarter: 2006Q1

REPORT INFORMATION
  Report Type: 
  Country: None (occurrence: None)
  Receive Date: 20060315
  Receipt Date: 20060315
  Transmission Date: 20060701
  Serious: Yes (Hospitalization)
  Sender: FDA-Public Use
  Company Number: None

PATIENT
  Age: 52 Year
  Sex: Male
  Weight: 78.9259 kg

DRUGS (2)
  1. GLARGINE INSULIN [Suspect]
     Indication: DIABETES MELLITUS
     Dosage: 56 UNITS QHS SC
     Route: 058
  2. ASPART INSULIN [Suspect]
     Dosage: 12 UNITS AC BID SC
     Route: 058

REACTIONS (4)
  - ARTHRALGIA [None]
  - CHILLS [None]
  - CONVULSION [None]
  - HYPOGLYCAEMIA [None]
